FAERS Safety Report 7983686-4 (Version None)
Quarter: 2011Q4

REPORT INFORMATION
  Report Type: 
  Country: None (occurrence: None)
  Receive Date: 20111215
  Receipt Date: 20111213
  Transmission Date: 20120403
  Serious: Yes (Hospitalization, Disabling)
  Sender: FDA-Public Use
  Company Number: US-MERCK-1104USA02658

PATIENT
  Sex: Female

DRUGS (5)
  1. FOSAMAX [Suspect]
     Indication: OSTEOPENIA
     Route: 048
     Dates: start: 19990401, end: 20100301
  2. FOSAMAX [Suspect]
     Route: 048
     Dates: start: 20030101, end: 20080201
  3. BONIVA [Suspect]
     Indication: OSTEOPENIA
     Route: 048
     Dates: start: 20100301, end: 20100901
  4. FOSAMAX [Suspect]
     Route: 048
     Dates: start: 20080201, end: 20100301
  5. FOSAMAX PLUS D [Suspect]
     Indication: PROPHYLAXIS
     Route: 048

REACTIONS (7)
  - FEMUR FRACTURE [None]
  - VITAMIN D DEFICIENCY [None]
  - LOW TURNOVER OSTEOPATHY [None]
  - FRACTURE NONUNION [None]
  - ADVERSE EVENT [None]
  - FALL [None]
  - HORMONE LEVEL ABNORMAL [None]
